FAERS Safety Report 5043187-2 (Version None)
Quarter: 2006Q3

REPORT INFORMATION
  Report Type: 
  Country: None (occurrence: None)
  Receive Date: 20060703
  Receipt Date: 20060703
  Transmission Date: 20061208
  Serious: Yes (Hospitalization)
  Sender: FDA-Public Use
  Company Number: None

PATIENT
  Age: 62 Year
  Sex: Female
  Weight: 105 kg

DRUGS (2)
  1. VELCADE [Suspect]
     Indication: MULTIPLE MYELOMA
     Dosage: 2.8 MG DAYS 1,4 IV
     Route: 042
     Dates: start: 20060616
  2. VELCADE [Suspect]
     Indication: MULTIPLE MYELOMA
     Dosage: 2.8 MG DAYS 1,4 IV
     Route: 042
     Dates: start: 20060619

REACTIONS (2)
  - ENCEPHALOPATHY [None]
  - PERIPHERAL MOTOR NEUROPATHY [None]
